FAERS Safety Report 8923771 (Version 1)
Quarter: 2012Q4

REPORT INFORMATION
  Report Type: 
  Country: DE (occurrence: DE)
  Receive Date: 20121126
  Receipt Date: 20121126
  Transmission Date: 20130627
  Serious: Yes (Hospitalization)
  Sender: FDA-Public Use
  Company Number: DE-B.I. PHARMACEUTICALS,INC./RIDGEFIELD-2012-DE-02758DE

PATIENT
  Age: 73 Year
  Sex: Male
  Weight: 82 kg

DRUGS (2)
  1. SPIRIVA [Suspect]
     Indication: CHRONIC OBSTRUCTIVE PULMONARY DISEASE
     Dosage: 2.5 mcg
     Route: 055
     Dates: start: 20120928, end: 20120930
  2. NYSTATIN [Suspect]
     Dosage: 200000 U
     Route: 048
     Dates: start: 20121002

REACTIONS (4)
  - Alanine aminotransferase [Unknown]
  - Drug eruption [Unknown]
  - Gamma-glutamyltransferase increased [Not Recovered/Not Resolved]
  - Mucosal inflammation [Not Recovered/Not Resolved]
